FAERS Safety Report 21841495 (Version 2)
Quarter: 2023Q1

REPORT INFORMATION
  Report Type: Report from Study
  Country: US (occurrence: US)
  Receive Date: 20230110
  Receipt Date: 20230306
  Transmission Date: 20230417
  Serious: No
  Sender: FDA-Public Use
  Company Number: US-ABBVIE-4228420

PATIENT
  Age: 50 Year
  Sex: Male

DRUGS (3)
  1. SKYRIZI [Suspect]
     Active Substance: RISANKIZUMAB-RZAA
     Indication: Psoriasis
     Dosage: WEEK 0?FORM STRENGTH: 150 MG?DISCONTINUED IN 2022
     Route: 058
     Dates: start: 20221129
  2. SKYRIZI [Suspect]
     Active Substance: RISANKIZUMAB-RZAA
     Dosage: FORM STRENGTH 150 MG?DISCONTINUED IN 2022?WEEK 4
     Route: 058
     Dates: start: 20221217
  3. SKYRIZI [Suspect]
     Active Substance: RISANKIZUMAB-RZAA
     Dosage: EVERY 12 WEEKS THERE AFTER??FORM STRENGTH 150 MG
     Route: 058

REACTIONS (3)
  - Off label use [Unknown]
  - Psoriasis [Unknown]
  - Skin disorder [Unknown]

NARRATIVE: CASE EVENT DATE: 20221129
